FAERS Safety Report 20101255 (Version 1)
Quarter: 2021Q4

REPORT INFORMATION
  Report Type: Spontaneous
  Country: US (occurrence: None)
  Receive Date: 20211122
  Receipt Date: 20211122
  Transmission Date: 20220304
  Serious: No
  Sender: FDA-Public Use
  Company Number: None

PATIENT
  Age: 78 Year
  Sex: Female

DRUGS (3)
  1. AMBRISENTAN [Suspect]
     Active Substance: AMBRISENTAN
     Route: 048
  2. SILDENAFIL [Concomitant]
     Active Substance: SILDENAFIL
  3. SILDENAFIL CITRATE [Concomitant]
     Active Substance: SILDENAFIL CITRATE

REACTIONS (4)
  - Fluid retention [None]
  - Dyspnoea [None]
  - Swelling [None]
  - Ear discomfort [None]

NARRATIVE: CASE EVENT DATE: 20211109
